FAERS Safety Report 8473605-9 (Version None)
Quarter: 2012Q2

REPORT INFORMATION
  Report Type: 
  Country: None (occurrence: None)
  Receive Date: 20120628
  Receipt Date: 20110721
  Transmission Date: 20120825
  Serious: Yes (Death)
  Sender: FDA-Public Use
  Company Number: US-MYLANLABS-2011S1013912

PATIENT
  Age: 72 Year
  Sex: Male

DRUGS (5)
  1. EXELON [Concomitant]
     Route: 048
  2. CLOZAPINE [Suspect]
     Indication: HALLUCINATION, VISUAL
     Route: 048
     Dates: end: 20110601
  3. CLONAZEPAM [Concomitant]
     Route: 048
  4. SINEMET [Concomitant]
     Dosage: 25/100 MG 1.5 TABLETS PO
     Route: 048
  5. VENLAFAXINE [Concomitant]
     Route: 048

REACTIONS (1)
  - MULTI-ORGAN FAILURE [None]
